FAERS Safety Report 5171541-7 (Version None)
Quarter: 2006Q4

REPORT INFORMATION
  Report Type: 
  Country: None (occurrence: None)
  Receive Date: 20061213
  Receipt Date: 20060725
  Transmission Date: 20070319
  Serious: Yes (Hospitalization)
  Sender: FDA-Public Use
  Company Number: US-AMGEN-US187874

PATIENT
  Sex: Male

DRUGS (2)
  1. ENBREL [Suspect]
     Indication: PSORIATIC ARTHROPATHY
     Route: 058
     Dates: start: 20050815
  2. METHOTREXATE [Concomitant]
     Route: 048
     Dates: start: 20050815

REACTIONS (3)
  - ABDOMINAL PAIN [None]
  - COUGH [None]
  - PYREXIA [None]
